FAERS Safety Report 7492280-3 (Version None)
Quarter: 2011Q2

REPORT INFORMATION
  Report Type: 
  Country: None (occurrence: None)
  Receive Date: 20110519
  Receipt Date: 20100928
  Transmission Date: 20111010
  Serious: No
  Sender: FDA-Public Use
  Company Number: US-NOVEN-SPV1-2010-01701

PATIENT
  Sex: Male

DRUGS (1)
  1. DAYTRANA [Suspect]

REACTIONS (2)
  - APPLICATION SITE DISCOLOURATION [None]
  - SKIN HYPOPIGMENTATION [None]
